FAERS Safety Report 4815034-2 (Version None)
Quarter: 2005Q4

REPORT INFORMATION
  Report Type: 
  Country: None (occurrence: None)
  Receive Date: 20051026
  Receipt Date: 20051010
  Transmission Date: 20060501
  Serious: Yes (Other)
  Sender: FDA-Public Use
  Company Number: GBS050918338

PATIENT
  Age: 16 Year
  Sex: Male
  Weight: 61 kg

DRUGS (4)
  1. STRATTERA [Suspect]
     Indication: ATTENTION DEFICIT/HYPERACTIVITY DISORDER
     Dosage: 78 MG
     Dates: start: 20050301
  2. EPILIM (VALPROATE SODIUM) [Concomitant]
  3. SALBUTMOL [Concomitant]
  4. EPILIUM                    (VALPROATE SODIUM) [Concomitant]
     Dosage: 100MGPO

REACTIONS (2)
  - ALCOHOL USE [None]
  - EPILEPSY [None]
